FAERS Safety Report 26045701 (Version 2)
Quarter: 2025Q4

REPORT INFORMATION
  Report Type: Report from Study
  Country: US (occurrence: US)
  Receive Date: 20251114
  Receipt Date: 20251124
  Transmission Date: 20260118
  Serious: Yes (Other)
  Sender: TAKEDA
  Company Number: US-TAKEDA-2025TUS051851

PATIENT
  Age: 66 Year
  Sex: Female

DRUGS (2)
  1. VEDOLIZUMAB [Suspect]
     Active Substance: VEDOLIZUMAB
     Indication: Colitis ulcerative
     Dosage: 108 MILLIGRAM, Q2WEEKS
  2. VEDOLIZUMAB [Suspect]
     Active Substance: VEDOLIZUMAB

REACTIONS (8)
  - Disability [Unknown]
  - Crohn^s disease [Unknown]
  - Thrombosis [Unknown]
  - Product dose omission issue [Unknown]
  - Diarrhoea [Unknown]
  - Lung disorder [Unknown]
  - Aortic aneurysm [Unknown]
  - Fibromyalgia [Unknown]
